FAERS Safety Report 20093664 (Version 1)
Quarter: 2021Q4

REPORT INFORMATION
  Report Type: Spontaneous
  Country: CA (occurrence: CA)
  Receive Date: 20211121
  Receipt Date: 20211121
  Transmission Date: 20220303
  Serious: Yes (Hospitalization)
  Sender: FDA-Public Use
  Company Number: CA-NOVARTISPH-NVSC2021CA239536

PATIENT
  Age: 14 Year
  Sex: Female

DRUGS (2)
  1. ELTROMBOPAG OLAMINE [Suspect]
     Active Substance: ELTROMBOPAG OLAMINE
     Indication: Immune thrombocytopenia
     Dosage: 37.5 MG, QD, (ALTERNATING BETWEEN 25 MG AND 50 MG)
     Route: 048
     Dates: start: 20210825
  2. ELTROMBOPAG OLAMINE [Suspect]
     Active Substance: ELTROMBOPAG OLAMINE
     Dosage: 50 MG, QD
     Route: 048
     Dates: start: 20211101

REACTIONS (10)
  - Dyspnoea [Unknown]
  - Chest pain [Unknown]
  - Headache [Unknown]
  - Heavy menstrual bleeding [Unknown]
  - Fatigue [Unknown]
  - Vomiting [Unknown]
  - Nausea [Unknown]
  - Alopecia [Unknown]
  - Platelet count abnormal [Unknown]
  - Asthenia [Unknown]

NARRATIVE: CASE EVENT DATE: 20210901
